FAERS Safety Report 5943168-8 (Version None)
Quarter: 2008Q4

REPORT INFORMATION
  Report Type: 
  Country: None (occurrence: None)
  Receive Date: 20081106
  Receipt Date: 20081103
  Transmission Date: 20090506
  Serious: Yes (Other)
  Sender: FDA-Public Use
  Company Number: A0754718A

PATIENT
  Age: 43 Year
  Sex: Male
  Weight: 62 kg

DRUGS (3)
  1. STELAZINE [Suspect]
     Indication: SCHIZOPHRENIA
     Dosage: 5MG PER DAY
     Route: 048
     Dates: start: 20081026
  2. AKINETON [Concomitant]
     Indication: DRUG USE FOR UNKNOWN INDICATION
     Route: 065
     Dates: start: 19900101
  3. PIPORTIL [Concomitant]
     Indication: DRUG USE FOR UNKNOWN INDICATION
     Dosage: 1TAB SEE DOSAGE TEXT
     Route: 048
     Dates: start: 19900101

REACTIONS (3)
  - HALLUCINATION [None]
  - INSOMNIA [None]
  - VOMITING [None]
